FAERS Safety Report 8410559-5 (Version None)
Quarter: 2012Q2

REPORT INFORMATION
  Report Type: 
  Country: None (occurrence: None)
  Receive Date: 20120605
  Receipt Date: 20120525
  Transmission Date: 20120825
  Serious: Yes (Hospitalization, Other)
  Sender: FDA-Public Use
  Company Number: US-BRISTOL-MYERS SQUIBB COMPANY-16638553

PATIENT
  Age: 72 Year
  Sex: Female
  Weight: 112 kg

DRUGS (14)
  1. PEMETREXED DISODIUM [Suspect]
     Indication: NON-SMALL CELL LUNG CANCER
     Dosage: DAY 1 IN 3 WEEKS,CYCLE 2 ON 28JUL10 1100MG
     Route: 042
     Dates: start: 20100707, end: 20100728
  2. EMEND [Concomitant]
  3. FOLVITE [Concomitant]
  4. LIPITOR [Concomitant]
  5. XANAX [Concomitant]
  6. DECADRON [Concomitant]
  7. MAVIK [Concomitant]
  8. ZIAC [Concomitant]
  9. CISPLATIN [Suspect]
     Indication: NON-SMALL CELL LUNG CANCER
     Dosage: DAY 1 IN 3 WEEKS,CYCLE 2 ON 28JUL10165 MG
     Route: 042
     Dates: start: 20100707, end: 20100728
  10. BEVACIZUMAB [Suspect]
     Indication: NON-SMALL CELL LUNG CANCER
     Dosage: DAY 1 IN 3 WEEKS,CYCLE 2 ON 28JUL10 1664MG
     Route: 042
     Dates: start: 20100707, end: 20100728
  11. ASPIRIN [Concomitant]
  12. ZYRTEC [Concomitant]
  13. ACETAMINOPHEN [Concomitant]
  14. FOSAMAX [Concomitant]

REACTIONS (2)
  - HEADACHE [None]
  - CONVULSION [None]
